FAERS Safety Report 21530027 (Version 3)
Quarter: 2023Q1

REPORT INFORMATION
  Report Type: Spontaneous
  Country: US (occurrence: US)
  Receive Date: 20221031
  Receipt Date: 20230111
  Transmission Date: 20230417
  Serious: Yes (Hospitalization, Other)
  Sender: FDA-Public Use
  Company Number: US-JNJFOC-20221044318

PATIENT
  Age: 15 Year
  Sex: Male

DRUGS (3)
  1. STELARA [Suspect]
     Active Substance: USTEKINUMAB
     Indication: Crohn^s disease
     Route: 058
     Dates: start: 202202
  2. STELARA [Suspect]
     Active Substance: USTEKINUMAB
  3. METHOTREXATE [Suspect]
     Active Substance: METHOTREXATE
     Indication: Product used for unknown indication
     Route: 065
     Dates: start: 2022

REACTIONS (10)
  - Pulmonary oedema [Unknown]
  - Suicidal ideation [Unknown]
  - Hospitalisation [Unknown]
  - Surgery [Unknown]
  - Crohn^s disease [Unknown]
  - Anal fistula [Unknown]
  - Abscess [Unknown]
  - Incoherent [Unknown]
  - Drug ineffective [Unknown]
  - Off label use [Unknown]
